FAERS Safety Report 7215306-0 (Version None)
Quarter: 2011Q1

REPORT INFORMATION
  Report Type: 
  Country: None (occurrence: None)
  Receive Date: 20110105
  Receipt Date: 20110105
  Transmission Date: 20110831
  Serious: Yes (Life-Threatening, Hospitalization, Disabling, Other)
  Sender: FDA-Public Use
  Company Number: None

PATIENT
  Age: 67 Year
  Sex: Male
  Weight: 99.7913 kg

DRUGS (1)
  1. ZOCOR [Suspect]
     Dosage: 1 DAILY PO
     Route: 048
     Dates: start: 20021015, end: 20071015

REACTIONS (9)
  - CHROMATURIA [None]
  - MUSCLE SPASMS [None]
  - BALANCE DISORDER [None]
  - PAIN IN EXTREMITY [None]
  - BACK PAIN [None]
  - SPEECH DISORDER [None]
  - ASTHENIA [None]
  - BLOOD ALUMINIUM INCREASED [None]
  - CARDIAC ARREST [None]
